FAERS Safety Report 5601341-2 (Version None)
Quarter: 2008Q1

REPORT INFORMATION
  Report Type: 
  Country: None (occurrence: None)
  Receive Date: 20080124
  Receipt Date: 20080114
  Transmission Date: 20080703
  Serious: Yes (Other)
  Sender: FDA-Public Use
  Company Number: CH-ABBOTT-07P-151-0427144-00

PATIENT
  Sex: Female
  Weight: 44 kg

DRUGS (5)
  1. HUMIRA [Suspect]
     Indication: RHEUMATOID ARTHRITIS
     Route: 058
     Dates: start: 20071014, end: 20071014
  2. HUMIRA [Suspect]
     Indication: SEROLOGY POSITIVE
     Dates: start: 20071028, end: 20071028
  3. HUMIRA [Suspect]
     Indication: INFLAMMATION
     Dates: start: 20071111
  4. HUMIRA [Suspect]
     Indication: DRUG INEFFECTIVE
  5. PREDNISONE [Concomitant]
     Indication: DRUG USE FOR UNKNOWN INDICATION

REACTIONS (8)
  - ASTHENIA [None]
  - CARDIAC FAILURE [None]
  - CHEST DISCOMFORT [None]
  - DYSPNOEA [None]
  - FLUID RETENTION [None]
  - SODIUM RETENTION [None]
  - TACHYARRHYTHMIA [None]
  - TACHYCARDIA [None]
